FAERS Safety Report 21274965 (Version 1)
Quarter: 2022Q3

REPORT INFORMATION
  Report Type: Spontaneous
  Country: US (occurrence: US)
  Receive Date: 20220831
  Receipt Date: 20220831
  Transmission Date: 20221027
  Serious: No
  Sender: FDA-Public Use
  Company Number: US-AMERICAN REGENT INC-2021002286

PATIENT
  Age: 67 Year
  Sex: Female

DRUGS (27)
  1. INJECTAFER [Suspect]
     Active Substance: FERRIC CARBOXYMALTOSE
     Indication: Iron deficiency anaemia
     Dosage: 750 MILLIGRAM, SINGLE
     Route: 065
     Dates: start: 20210702, end: 20210702
  2. INJECTAFER [Suspect]
     Active Substance: FERRIC CARBOXYMALTOSE
     Dosage: 750 MILLIGRAM IN 100 ML NS
     Route: 042
     Dates: start: 20210709, end: 20210709
  3. AMITRIPTYLINE [Concomitant]
     Active Substance: AMITRIPTYLINE
     Indication: Product used for unknown indication
     Dosage: 2 AT BEDTIME (HS)
     Route: 048
  4. ASPIRIN [Concomitant]
     Active Substance: ASPIRIN
     Indication: Product used for unknown indication
     Dosage: 1, QD
     Route: 048
  5. ATORVASTATIN                       /01326102/ [Concomitant]
     Indication: Product used for unknown indication
     Dosage: 1, QD
     Route: 048
  6. CALCIUM WITH VITAMIN D             /00944201/ [Concomitant]
     Indication: Product used for unknown indication
     Dosage: 1 QD
     Route: 048
  7. CENTRUM SILVER                     /02363801/ [Concomitant]
     Indication: Product used for unknown indication
     Dosage: 1 QD
     Route: 048
  8. DICLOFENAC [Concomitant]
     Active Substance: DICLOFENAC
     Indication: Product used for unknown indication
     Dosage: APPLY TO UPPER EXTREMITIES QID
     Route: 061
  9. DITROPAN [Concomitant]
     Active Substance: OXYBUTYNIN CHLORIDE
     Indication: Product used for unknown indication
     Dosage: 1 QD
     Route: 048
  10. FLAXSEED OIL [LINUM USITATISSIMUM OIL] [Concomitant]
     Indication: Product used for unknown indication
     Dosage: 1, QD
     Route: 048
  11. FOSAMAX [Concomitant]
     Active Substance: ALENDRONATE SODIUM
     Indication: Product used for unknown indication
     Dosage: ONCE WEEKLY
     Route: 065
  12. CHONDROITIN SULFATE (BOVINE)\GLUCOSAMINE SULFATE [Concomitant]
     Active Substance: CHONDROITIN SULFATE (BOVINE)\GLUCOSAMINE SULFATE
     Indication: Product used for unknown indication
     Dosage: 1 QD
     Route: 048
  13. JARDIANCE [Concomitant]
     Active Substance: EMPAGLIFLOZIN
     Indication: Product used for unknown indication
     Dosage: 1 QD
     Route: 048
  14. LANTUS [Concomitant]
     Active Substance: INSULIN GLARGINE
     Indication: Product used for unknown indication
     Dosage: 35 UNITS Q AM (100 UNIT ML (3 MLSUBCUTANEOUS PEN))
     Route: 065
  15. LINZESS [Concomitant]
     Active Substance: LINACLOTIDE
     Indication: Product used for unknown indication
     Dosage: 1, QD
     Route: 048
  16. MACRODANTIN [Concomitant]
     Active Substance: NITROFURANTOIN
     Indication: Product used for unknown indication
     Dosage: 1, QD
     Route: 048
  17. METOPROLOL TARTRATE [Concomitant]
     Active Substance: METOPROLOL TARTRATE
     Indication: Product used for unknown indication
     Dosage: 1, BID
     Route: 048
  18. MYRBETRIQ [Concomitant]
     Active Substance: MIRABEGRON
     Indication: Product used for unknown indication
     Dosage: 1 QD
     Route: 048
  19. NIACIN [Concomitant]
     Active Substance: NIACIN
     Indication: Product used for unknown indication
     Dosage: 1, QD
     Route: 048
  20. NITROGLYCERIN [Concomitant]
     Active Substance: NITROGLYCERIN
     Indication: Product used for unknown indication
     Dosage: UNK, PRN
  21. NOVOLOG [Concomitant]
     Active Substance: INSULIN ASPART
     Indication: Product used for unknown indication
     Dosage: 100 UNIT ML, ON A SLIDING SCALE
     Route: 058
  22. NYSTATIN [Concomitant]
     Active Substance: NYSTATIN
     Indication: Product used for unknown indication
     Dosage: 100000 UNIT TOP CAR CREAM APPLY BID
     Route: 061
  23. OMEPRAZOLE [Concomitant]
     Active Substance: OMEPRAZOLE
     Indication: Product used for unknown indication
     Dosage: 1, QD
     Route: 048
  24. TIZANIDINE [Concomitant]
     Active Substance: TIZANIDINE
     Indication: Muscle spasms
     Dosage: 1/2-1 THREE TIMES A DAY PRN
     Route: 048
  25. TRULICITY [Concomitant]
     Active Substance: DULAGLUTIDE
     Indication: Product used for unknown indication
     Dosage: 0.75 MG/0.5 ML SUBCUTANEOUS PEN INJECTOR ONCE A WEEK
     Route: 058
  26. VITAMIN B12 [Concomitant]
     Active Substance: CYANOCOBALAMIN
     Indication: Product used for unknown indication
     Dosage: 1, QD
     Route: 048
  27. VITAMIN D3 [Concomitant]
     Active Substance: CHOLECALCIFEROL
     Indication: Product used for unknown indication
     Dosage: 1 QD
     Route: 048

REACTIONS (3)
  - Flushing [Recovered/Resolved]
  - Dizziness [Recovered/Resolved]
  - Nausea [Recovered/Resolved]

NARRATIVE: CASE EVENT DATE: 20210707
